FAERS Safety Report 25734329 (Version 1)
Quarter: 2025Q3

REPORT INFORMATION
  Report Type: Spontaneous
  Country: EU (occurrence: EU)
  Receive Date: 20250828
  Receipt Date: 20250828
  Transmission Date: 20251021
  Serious: Yes (Other)
  Sender: ASTELLAS
  Company Number: EU-ASTELLAS-2025-AER-047209

PATIENT
  Sex: Male

DRUGS (13)
  1. ISAVUCONAZOLE [Suspect]
     Active Substance: ISAVUCONAZOLE
     Indication: Antifungal treatment
     Route: 050
  2. POSACONAZOLE [Suspect]
     Active Substance: POSACONAZOLE
     Indication: Product used for unknown indication
     Route: 065
     Dates: start: 202504
  3. TACROLIMUS [Concomitant]
     Active Substance: TACROLIMUS
     Indication: Lung transplant
     Route: 065
     Dates: start: 20240710
  4. AMPHOTERICIN B [Concomitant]
     Active Substance: AMPHOTERICIN B
     Indication: Prophylaxis
     Route: 065
     Dates: start: 20240710
  5. CELLCEPT [Concomitant]
     Active Substance: MYCOPHENOLATE MOFETIL
     Indication: Lung transplant
     Route: 065
     Dates: start: 20240710
  6. OMEPRAZOLE [Concomitant]
     Active Substance: OMEPRAZOLE
     Indication: Lung transplant
     Route: 065
     Dates: start: 20240710
  7. CALCIUM CARBONATE\CHOLECALCIFEROL [Concomitant]
     Active Substance: CALCIUM CARBONATE\CHOLECALCIFEROL
     Indication: Lung transplant
     Route: 065
     Dates: start: 20240710
  8. QUETIAPINE [Concomitant]
     Active Substance: QUETIAPINE
     Indication: Lung transplant
     Route: 065
     Dates: start: 20240710
  9. MIRTAZAPINE [Concomitant]
     Active Substance: MIRTAZAPINE
     Indication: Lung transplant
     Route: 065
     Dates: start: 20240710
  10. MAGNOGENE [Concomitant]
     Indication: Lung transplant
     Route: 065
     Dates: start: 20240710
  11. PREDNISONE [Concomitant]
     Active Substance: PREDNISONE
     Indication: Lung transplant
     Route: 065
     Dates: start: 20240710
  12. AZITHROMYCIN ANHYDROUS [Concomitant]
     Active Substance: AZITHROMYCIN ANHYDROUS
     Indication: Lung transplant
     Route: 065
     Dates: start: 20240710
  13. SULFAMETHOXAZOLE\TRIMETHOPRIM [Concomitant]
     Active Substance: SULFAMETHOXAZOLE\TRIMETHOPRIM
     Indication: Prophylaxis
     Route: 065
     Dates: start: 20240710

REACTIONS (1)
  - Neurotoxicity [Not Recovered/Not Resolved]
